FAERS Safety Report 7246920-4 (Version None)
Quarter: 2011Q1

REPORT INFORMATION
  Report Type: 
  Country: None (occurrence: None)
  Receive Date: 20110127
  Receipt Date: 20110117
  Transmission Date: 20110831
  Serious: No
  Sender: FDA-Public Use
  Company Number: US-B.I. PHARMACEUTICALS,INC./RIDGEFIELD-2011-BP-01381BP

PATIENT
  Sex: Female

DRUGS (10)
  1. PRADAXA [Suspect]
     Indication: ATRIAL FIBRILLATION
     Dosage: 300 MG
     Route: 048
     Dates: start: 20110102, end: 20110107
  2. VITAMIN D [Concomitant]
     Indication: VITAMIN SUPPLEMENTATION
  3. CARVEDILOL [Concomitant]
     Indication: HYPERTENSION
  4. AMLODIPINE [Concomitant]
     Indication: HYPERTENSION
  5. ADVAIR [Concomitant]
     Indication: CHRONIC OBSTRUCTIVE PULMONARY DISEASE
  6. OXYGEN [Concomitant]
     Indication: CHRONIC OBSTRUCTIVE PULMONARY DISEASE
  7. VITAMIN D [Concomitant]
     Indication: BONE DISORDER
  8. BENICAR [Concomitant]
     Indication: HYPERTENSION
  9. CRESTOR [Concomitant]
     Indication: BLOOD CHOLESTEROL INCREASED
  10. PRADAXA [Suspect]
     Dosage: 300 MG
     Route: 048
     Dates: start: 20110117

REACTIONS (1)
  - CONSTIPATION [None]
